FAERS Safety Report 5531721-5 (Version None)
Quarter: 2007Q4

REPORT INFORMATION
  Report Type: 
  Country: None (occurrence: None)
  Receive Date: 20071128
  Receipt Date: 20071120
  Transmission Date: 20080405
  Serious: Yes (Other)
  Sender: FDA-Public Use
  Company Number: CHPA2007US12482

PATIENT
  Age: 53 Year
  Sex: Female

DRUGS (1)
  1. VAGISTAT-1 [Suspect]
     Dosage: VAGINAL
     Route: 067

REACTIONS (2)
  - FOREIGN BODY TRAUMA [None]
  - WRONG TECHNIQUE IN DRUG USAGE PROCESS [None]
